FAERS Safety Report 7816665-8 (Version None)
Quarter: 2011Q4

REPORT INFORMATION
  Report Type: 
  Country: None (occurrence: None)
  Receive Date: 20111017
  Receipt Date: 20111014
  Transmission Date: 20120403
  Serious: No
  Sender: FDA-Public Use
  Company Number: US-PFIZER INC-2011246345

PATIENT
  Sex: Male
  Weight: 113 kg

DRUGS (10)
  1. ABILIFY [Concomitant]
     Indication: ANXIETY
     Dosage: 5 MG, DAILY
  2. CHANTIX [Suspect]
     Dosage: UNKNOWN DOSE TWO TIMES A DAY
     Dates: start: 20110101
  3. CRESTOR [Concomitant]
     Indication: ARTERIOSCLEROSIS
     Dosage: 5 MG, DAILY
  4. REMERON [Concomitant]
     Indication: DEPRESSION
  5. SPIRIVA [Concomitant]
     Indication: EMPHYSEMA
     Dosage: 5 MG, DAILY
  6. LEXAPRO [Concomitant]
     Indication: DEPRESSION
  7. REMERON [Concomitant]
     Indication: ANXIETY
     Dosage: 45 MG, DAILY
  8. LEXAPRO [Concomitant]
     Indication: ANXIETY
     Dosage: 20 MG, DAILY
  9. CHANTIX [Suspect]
     Indication: SMOKING CESSATION THERAPY
     Dosage: 0.5 MG, UNK
     Dates: start: 20110901, end: 20110101
  10. ABILIFY [Concomitant]
     Indication: DEPRESSION

REACTIONS (1)
  - VISION BLURRED [None]
